FAERS Safety Report 4365100-3 (Version None)
Quarter: 2004Q2

REPORT INFORMATION
  Report Type: 
  Country: None (occurrence: None)
  Receive Date: 20040521
  Receipt Date: 20040512
  Transmission Date: 20050107
  Serious: Yes (Hospitalization)
  Sender: FDA-Public Use
  Company Number: F01200401076

PATIENT
  Age: 79 Year
  Sex: Male

DRUGS (3)
  1. FONDAPARINUX SODIUM [Suspect]
     Indication: ORTHOPEDIC PROCEDURE
     Dosage: 2.5 MG; SUBCUTANEOUS
     Route: 058
     Dates: start: 20040226, end: 20040229
  2. CEFUROXIM (CEFUROXIME) [Concomitant]
  3. INDOMETHACIN [Concomitant]

REACTIONS (1)
  - BLOOD CREATININE INCREASED [None]
